FAERS Safety Report 11830371 (Version 3)
Quarter: 2015Q4

REPORT INFORMATION
  Report Type: Spontaneous
  Country: US (occurrence: US)
  Receive Date: 20151214
  Receipt Date: 20151214
  Transmission Date: 20160305
  Serious: Yes (Disabling, Other)
  Sender: FDA-Public Use
  Company Number: US-JNJFOC-20151108280

PATIENT
  Sex: Male
  Weight: 78.93 kg

DRUGS (2)
  1. AVALOX [Suspect]
     Active Substance: MOXIFLOXACIN HYDROCHLORIDE
     Indication: PROPHYLAXIS
     Route: 065
     Dates: start: 20060615
  2. LEVAQUIN [Suspect]
     Active Substance: LEVOFLOXACIN
     Indication: SINUSITIS
     Route: 048
     Dates: start: 20060628, end: 20060718

REACTIONS (7)
  - Inguinal hernia [Unknown]
  - Musculoskeletal stiffness [Unknown]
  - Headache [Unknown]
  - Off label use [Unknown]
  - Pain [Unknown]
  - Drug prescribing error [Unknown]
  - Musculoskeletal pain [Unknown]

NARRATIVE: CASE EVENT DATE: 200607
